FAERS Safety Report 13710296 (Version 1)
Quarter: 2017Q2

REPORT INFORMATION
  Report Type: Spontaneous
  Country: US (occurrence: US)
  Receive Date: 20170630
  Receipt Date: 20170630
  Transmission Date: 20170830
  Serious: No
  Sender: FDA-Public Use
  Company Number: None

PATIENT
  Age: 24 Year
  Sex: Female

DRUGS (1)
  1. INTRON A [Suspect]
     Active Substance: INTERFERON ALFA-2B
     Route: 058
     Dates: start: 201607

REACTIONS (4)
  - Vein disorder [None]
  - Arthralgia [None]
  - Myalgia [None]
  - Impaired work ability [None]

NARRATIVE: CASE EVENT DATE: 20170415
